FAERS Safety Report 4465697-9 (Version None)
Quarter: 2004Q4

REPORT INFORMATION
  Report Type: 
  Country: None (occurrence: None)
  Receive Date: 20041004
  Receipt Date: 20040908
  Transmission Date: 20050328
  Serious: Yes (Other)
  Sender: FDA-Public Use
  Company Number: JP-MERCK-0409USA01093

PATIENT
  Age: 19 Year
  Sex: Female
  Weight: 55 kg

DRUGS (6)
  1. ENDOXAN [Suspect]
     Indication: TERATOMA
     Route: 042
     Dates: start: 19950501
  2. ENDOXAN [Suspect]
     Route: 042
     Dates: start: 19980101, end: 19980101
  3. COSMEGEN [Suspect]
     Indication: TERATOMA
     Route: 042
     Dates: start: 19950501
  4. COSMEGEN [Suspect]
     Route: 042
     Dates: start: 19980101, end: 19980101
  5. ONCOVIN [Suspect]
     Indication: TERATOMA
     Route: 042
     Dates: start: 19950501
  6. ONCOVIN [Suspect]
     Route: 042
     Dates: start: 19980101, end: 19980101

REACTIONS (7)
  - DRUG INEFFECTIVE [None]
  - NEOPLASM RECURRENCE [None]
  - PYREXIA [None]
  - RECURRENT CANCER [None]
  - REFUSAL OF TREATMENT BY PATIENT [None]
  - TERATOMA [None]
  - WHITE BLOOD CELL COUNT DECREASED [None]
